FAERS Safety Report 8993020 (Version 1)
Quarter: 2013Q1

REPORT INFORMATION
  Report Type: Spontaneous
  Country: IT (occurrence: IT)
  Receive Date: 20130102
  Receipt Date: 20130102
  Transmission Date: 20140127
  Serious: Yes (Hospitalization)
  Sender: FDA-Public Use
  Company Number: IT-JNJFOC-20121210975

PATIENT
  Age: 61 Year
  Sex: Male

DRUGS (1)
  1. SERENASE [Suspect]
     Indication: PSYCHOTIC DISORDER
     Route: 048
     Dates: start: 20121204, end: 20121204

REACTIONS (2)
  - Malaise [Recovering/Resolving]
  - Pallor [Recovering/Resolving]
